FAERS Safety Report 25200726 (Version 1)
Quarter: 2025Q2

REPORT INFORMATION
  Report Type: Spontaneous
  Country: US (occurrence: US)
  Receive Date: 20250415
  Receipt Date: 20250415
  Transmission Date: 20250717
  Serious: No
  Sender: BAYER
  Company Number: US-BAYER-2025A050206

PATIENT
  Sex: Female

DRUGS (3)
  1. MIRENA [Suspect]
     Active Substance: LEVONORGESTREL
     Indication: Contraception
     Dosage: 20?G/DAY
     Route: 015
     Dates: start: 202311
  2. VERZENIO [Concomitant]
     Active Substance: ABEMACICLIB
  3. OTEZLA [Concomitant]
     Active Substance: APREMILAST

REACTIONS (1)
  - Diarrhoea [None]
